FAERS Safety Report 8326645-4 (Version None)
Quarter: 2012Q2

REPORT INFORMATION
  Report Type: 
  Country: None (occurrence: None)
  Receive Date: 20120501
  Receipt Date: 20120427
  Transmission Date: 20120825
  Serious: Yes (Hospitalization)
  Sender: FDA-Public Use
  Company Number: IT-PFIZER INC-2012105753

PATIENT
  Age: 76 Year
  Sex: Male

DRUGS (9)
  1. LASIX [Concomitant]
  2. COUMADIN [Concomitant]
     Indication: ATRIAL FIBRILLATION
  3. BISOPROLOL [Concomitant]
  4. SPIRIVA [Concomitant]
  5. FLUTICASONE PROPIONATE/SALMETEROL [Concomitant]
  6. ENALAPRIL [Concomitant]
  7. ALLOPURINOL [Concomitant]
  8. NEXIUM [Concomitant]
  9. MEDROL [Suspect]
     Indication: CHRONIC OBSTRUCTIVE PULMONARY DISEASE
     Dosage: 4 MG, 1 DOSAGE UNIT, DAILY
     Route: 048
     Dates: start: 20111208, end: 20120112

REACTIONS (1)
  - DIABETES MELLITUS [None]
